FAERS Safety Report 6971866-6 (Version None)
Quarter: 2010Q3

REPORT INFORMATION
  Report Type: 
  Country: None (occurrence: None)
  Receive Date: 20100908
  Receipt Date: 20100908
  Transmission Date: 20110219
  Serious: Yes (Hospitalization)
  Sender: FDA-Public Use
  Company Number: None

PATIENT
  Age: 44 Year
  Sex: Female
  Weight: 63.6 kg

DRUGS (3)
  1. HUMIRA [Suspect]
     Indication: CROHN'S DISEASE
     Dosage: 40MG 1X EVERY OTHER WEEK SQ
     Route: 058
     Dates: start: 20100430
  2. HUMIRA [Suspect]
     Indication: CROHN'S DISEASE
     Dosage: 40MG 1X EVERY OTHER WEEK SQ
     Route: 058
     Dates: start: 20100809
  3. HUMIRA [Suspect]
     Indication: CROHN'S DISEASE
     Dosage: 40MG 1X EVERY OTHER WEEK SQ
     Route: 058
     Dates: start: 20100823

REACTIONS (9)
  - ANAPHYLACTIC REACTION [None]
  - BLOOD GLUCOSE DECREASED [None]
  - DECREASED APPETITE [None]
  - DEHYDRATION [None]
  - HAEMATURIA [None]
  - HYPOTENSION [None]
  - ILEUS [None]
  - IMPAIRED GASTRIC EMPTYING [None]
  - TACHYCARDIA [None]
